FAERS Safety Report 15251530 (Version 1)
Quarter: 2018Q3

REPORT INFORMATION
  Report Type: Spontaneous
  Country: GB (occurrence: GB)
  Receive Date: 20180807
  Receipt Date: 20180807
  Transmission Date: 20181010
  Serious: Yes (Hospitalization)
  Sender: FDA-Public Use
  Company Number: GB-SEATTLE GENETICS-2018SGN00910

PATIENT
  Sex: Female
  Weight: 78 kg

DRUGS (7)
  1. ADCETRIS [Suspect]
     Active Substance: BRENTUXIMAB VEDOTIN
     Indication: PRODUCT USED FOR UNKNOWN INDICATION
     Dosage: UNK
     Route: 065
     Dates: start: 20140418, end: 20140627
  2. DOXORUBICIN [Concomitant]
     Active Substance: DOXORUBICIN
     Dosage: UNK
     Dates: start: 201312, end: 201406
  3. PREDNISONE. [Concomitant]
     Active Substance: PREDNISONE
     Dosage: UNK
     Dates: start: 201312, end: 201406
  4. DACARBAZINE CITRATE [Concomitant]
     Active Substance: DACARBAZINE CITRATE
     Dosage: UNK
     Dates: start: 201312, end: 201406
  5. ETOPOSIDE. [Concomitant]
     Active Substance: ETOPOSIDE
     Dosage: UNK
     Dates: start: 201312, end: 201406
  6. VINCRISTINE [Concomitant]
     Active Substance: VINCRISTINE
     Dosage: UNK
     Dates: start: 201312, end: 201406
  7. CYCLOPHOSPHAMIDE. [Concomitant]
     Active Substance: CYCLOPHOSPHAMIDE
     Dosage: UNK
     Dates: start: 201312, end: 201406

REACTIONS (5)
  - Musculoskeletal pain [Recovered/Resolved]
  - Pneumonia klebsiella [Recovered/Resolved]
  - Pain [Recovered/Resolved]
  - Neurotoxicity [Unknown]
  - Off label use [Unknown]

NARRATIVE: CASE EVENT DATE: 20130421
